FAERS Safety Report 9068296 (Version 1)
Quarter: 2013Q1

REPORT INFORMATION
  Report Type: Spontaneous
  Country: IL (occurrence: IL)
  Receive Date: 20130128
  Receipt Date: 20130128
  Transmission Date: 20140127
  Serious: Yes (Other)
  Sender: FDA-Public Use
  Company Number: IL-PFIZER INC-2013024515

PATIENT
  Sex: Female

DRUGS (1)
  1. LIPITOR [Suspect]
     Dosage: 10 MG, UNK

REACTIONS (9)
  - Angina pectoris [Unknown]
  - Rash [Unknown]
  - Nausea [Unknown]
  - Myalgia [Unknown]
  - Chest pain [Unknown]
  - Vision blurred [Unknown]
  - Asthenia [Unknown]
  - Fatigue [Unknown]
  - Dysphonia [Unknown]
